FAERS Safety Report 7080484-3 (Version None)
Quarter: 2010Q4

REPORT INFORMATION
  Report Type: 
  Country: None (occurrence: None)
  Receive Date: 20101103
  Receipt Date: 20101029
  Transmission Date: 20110411
  Serious: Yes (Death, Hospitalization)
  Sender: FDA-Public Use
  Company Number: FR-BAYER-201039671GPV

PATIENT
  Age: 70 Year
  Sex: Male
  Weight: 84 kg

DRUGS (13)
  1. NEXAVAR [Suspect]
     Indication: HEPATIC NEOPLASM MALIGNANT
     Dosage: AS USED: 400 MG  UNIT DOSE: 200 MG
     Route: 048
     Dates: start: 20100429, end: 20100607
  2. NEXAVAR [Suspect]
     Dosage: UNIT DOSE: 200 MG
     Route: 048
     Dates: start: 20100813, end: 20100910
  3. NEXIUM [Concomitant]
     Indication: GASTROOESOPHAGEAL REFLUX DISEASE
     Route: 048
     Dates: start: 20100101
  4. FORLAX [Concomitant]
     Indication: CONSTIPATION
     Dosage: 1 SACHET
     Route: 048
     Dates: start: 20100601
  5. SOLUPRED [Concomitant]
     Route: 048
     Dates: start: 20100911
  6. ALDACTONE [Concomitant]
     Indication: ASCITES
     Route: 048
     Dates: start: 20100910, end: 20100918
  7. DOLIPRANE [Concomitant]
     Indication: PAIN
     Dosage: ON DEMAND
     Route: 048
     Dates: start: 20100901
  8. ARIXTRA [Concomitant]
     Route: 042
     Dates: start: 20100601
  9. SKENAN [Concomitant]
     Indication: PAIN
     Route: 048
     Dates: start: 20100625, end: 20100723
  10. SKENAN [Concomitant]
     Route: 048
     Dates: start: 20100911
  11. DIFFU-K [Concomitant]
     Dates: start: 20100901
  12. CALCIDOSE VIT D3 [Concomitant]
     Dates: start: 20100901
  13. XANAX [Concomitant]
     Dates: start: 20100601

REACTIONS (5)
  - ASCITES [None]
  - BONE PAIN [None]
  - CONFUSIONAL STATE [None]
  - HEPATIC NEOPLASM MALIGNANT [None]
  - OEDEMA [None]
